FAERS Safety Report 16272109 (Version 1)
Quarter: 2019Q2

REPORT INFORMATION
  Report Type: Spontaneous
  Country: FR (occurrence: FR)
  Receive Date: 20190503
  Receipt Date: 20190503
  Transmission Date: 20190711
  Serious: Yes (Hospitalization)
  Sender: FDA-Public Use
  Company Number: FR-PFM-2019-04964

PATIENT

DRUGS (2)
  1. NAVELBINE [Suspect]
     Active Substance: VINORELBINE TARTRATE
     Indication: LUNG NEOPLASM MALIGNANT
     Dosage: 62MG
     Route: 041
     Dates: start: 20190403, end: 20190403
  2. CISPLATIN ACCORD [Suspect]
     Active Substance: CISPLATIN
     Indication: LUNG NEOPLASM MALIGNANT
     Dosage: 165 MG
     Route: 041
     Dates: start: 20190403, end: 20190403

REACTIONS (4)
  - Thrombocytopenia [Not Recovered/Not Resolved]
  - Decreased appetite [Not Recovered/Not Resolved]
  - Weight decreased [Not Recovered/Not Resolved]
  - Peritonitis [Not Recovered/Not Resolved]

NARRATIVE: CASE EVENT DATE: 20190408
